FAERS Safety Report 9867220 (Version 1)
Quarter: 2014Q1

REPORT INFORMATION
  Report Type: Spontaneous
  Country: TW (occurrence: TW)
  Receive Date: 20140204
  Receipt Date: 20140204
  Transmission Date: 20141002
  Serious: Yes (Hospitalization)
  Sender: FDA-Public Use
  Company Number: TW-ROXANE LABORATORIES, INC.-2014-RO-00130RO

PATIENT
  Age: 91 Year
  Sex: Female

DRUGS (6)
  1. LEVETIRACETAM [Suspect]
     Indication: CONVULSION
  2. BENZYL HYDROCHLOROTHIAZIDE [Suspect]
     Indication: HYPERTENSION
  3. AMLODIPINE [Concomitant]
  4. METOCLOPRAMIDE [Concomitant]
  5. SENNOSIDE [Concomitant]
  6. ESOMEPRAZOLE [Concomitant]

REACTIONS (1)
  - Acute generalised exanthematous pustulosis [Recovered/Resolved]
